FAERS Safety Report 15568970 (Version 1)
Quarter: 2018Q4

REPORT INFORMATION
  Report Type: Spontaneous
  Country: US (occurrence: US)
  Receive Date: 20181031
  Receipt Date: 20181031
  Transmission Date: 20190205
  Serious: No
  Sender: FDA-Public Use
  Company Number: US-009507513-1810USA001396

PATIENT

DRUGS (1)
  1. DULERA [Suspect]
     Active Substance: FORMOTEROL FUMARATE DIHYDRATE\MOMETASONE FUROATE
     Dosage: 2 PUFFS PER DAY TWICE DAILY
     Route: 055

REACTIONS (3)
  - Product quality issue [Unknown]
  - No adverse event [Unknown]
  - Circumstance or information capable of leading to device use error [Unknown]
